FAERS Safety Report 4759610-4 (Version None)
Quarter: 2005Q3

REPORT INFORMATION
  Report Type: 
  Country: None (occurrence: None)
  Receive Date: 20050831
  Receipt Date: 20050818
  Transmission Date: 20060218
  Serious: Yes (Hospitalization, Disabling, Other)
  Sender: FDA-Public Use
  Company Number: 2005117419

PATIENT
  Age: 56 Year
  Sex: Female
  Weight: 108.8633 kg

DRUGS (7)
  1. NEURONTIN [Suspect]
     Indication: BRAIN DAMAGE
     Dosage: 300 MG (100 MG, 3 IN 1 D),
     Dates: start: 19960101
  2. NEURONTIN [Suspect]
     Indication: CONVULSION
     Dosage: 300 MG (100 MG, 3 IN 1 D),
     Dates: start: 19960101
  3. NEURONTIN [Suspect]
     Indication: DYSKINESIA
     Dosage: 300 MG (100 MG, 3 IN 1 D),
     Dates: start: 19960101
  4. MAGNESIUM (MAGNESIUM) [Suspect]
     Indication: PAIN IN EXTREMITY
     Dosage: INTRAVENOUS
     Route: 042
     Dates: start: 19980101
  5. MAGNESIUM (MAGNESIUM) [Suspect]
     Indication: WALKING DISABILITY
     Dosage: INTRAVENOUS
     Route: 042
     Dates: start: 19980101
  6. IBUPROFEN [Concomitant]
  7. MONTELUKAST (MONTELUKAST) [Concomitant]

REACTIONS (9)
  - ABASIA [None]
  - COMA [None]
  - CONVULSION [None]
  - FALL [None]
  - FEELING ABNORMAL [None]
  - HEAD INJURY [None]
  - MOBILITY DECREASED [None]
  - NEUROPATHY [None]
  - PAIN IN EXTREMITY [None]
